FAERS Safety Report 4934899-7 (Version None)
Quarter: 2006Q1

REPORT INFORMATION
  Report Type: 
  Country: None (occurrence: None)
  Receive Date: 20060302
  Receipt Date: 20060215
  Transmission Date: 20060701
  Serious: Yes (Death, Hospitalization)
  Sender: FDA-Public Use
  Company Number: MPS1-10499

PATIENT
  Age: 24 Month
  Sex: Male

DRUGS (1)
  1. ALDURAZYME [Suspect]
     Indication: MUCOPOLYSACCHARIDOSIS I
     Dates: start: 20040901, end: 20060201

REACTIONS (2)
  - BONE MARROW TRANSPLANT [None]
  - GRAFT VERSUS HOST DISEASE [None]
